FAERS Safety Report 16401303 (Version 1)
Quarter: 2019Q2

REPORT INFORMATION
  Report Type: Spontaneous
  Country: US (occurrence: US)
  Receive Date: 20190606
  Receipt Date: 20190606
  Transmission Date: 20190711
  Serious: No
  Sender: FDA-Public Use
  Company Number: US-PTC THERAPEUTICS, INC.-US-2019PTC000263

PATIENT
  Sex: Male

DRUGS (2)
  1. EMFLAZA [Suspect]
     Active Substance: DEFLAZACORT
     Indication: DUCHENNE MUSCULAR DYSTROPHY
     Dosage: 42 MG, QD
     Route: 048
     Dates: start: 20171114
  2. EMFLAZA [Suspect]
     Active Substance: DEFLAZACORT
     Dosage: 42 MG, QD
     Route: 048
     Dates: start: 201708

REACTIONS (6)
  - Fungal skin infection [Unknown]
  - Skin exfoliation [Unknown]
  - Urticaria [Recovered/Resolved]
  - Skin discolouration [Unknown]
  - Drug hypersensitivity [Unknown]
  - Rash generalised [Unknown]

NARRATIVE: CASE EVENT DATE: 2017
